FAERS Safety Report 25948719 (Version 3)
Quarter: 2025Q4

REPORT INFORMATION
  Report Type: Spontaneous
  Country: US (occurrence: US)
  Receive Date: 20251022
  Receipt Date: 20251205
  Transmission Date: 20260119
  Serious: No
  Sender: TAKEDA
  Company Number: US-TAKEDA-2025TUS090931

PATIENT

DRUGS (2)
  1. ENTYVIO [Suspect]
     Active Substance: VEDOLIZUMAB
     Indication: Product used for unknown indication
     Dosage: 108 MILLIGRAM
  2. ENTYVIO [Suspect]
     Active Substance: VEDOLIZUMAB

REACTIONS (2)
  - Device failure [Unknown]
  - Incorrect dose administered [Unknown]
